FAERS Safety Report 9347957 (Version 2)
Quarter: 2013Q3

REPORT INFORMATION
  Report Type: Spontaneous
  Country: IT (occurrence: IT)
  Receive Date: 20130614
  Receipt Date: 20130715
  Transmission Date: 20140515
  Serious: Yes (Hospitalization)
  Sender: FDA-Public Use
  Company Number: IT-SANOFI-AVENTIS-2013SA057540

PATIENT
  Age: 65 Year
  Sex: Male

DRUGS (2)
  1. JEVTANA [Suspect]
     Indication: PROSTATE CANCER METASTATIC
     Route: 042
     Dates: start: 20130110, end: 20130208
  2. JEVTANA [Suspect]
     Indication: PROSTATE CANCER METASTATIC
     Route: 065

REACTIONS (1)
  - Enteritis [Recovered/Resolved]
